FAERS Safety Report 10087082 (Version 1)
Quarter: 2014Q2

REPORT INFORMATION
  Report Type: Spontaneous
  Country: FR (occurrence: FR)
  Receive Date: 20140418
  Receipt Date: 20140418
  Transmission Date: 20141212
  Serious: Yes (Life-Threatening, Other)
  Sender: FDA-Public Use
  Company Number: FR-ELI_LILLY_AND_COMPANY-FR201404006017

PATIENT
  Age: 74 Year
  Sex: Female

DRUGS (4)
  1. OPTRUMA [Suspect]
     Indication: OSTEOPOROSIS
     Dosage: 60 MG, QD
     Route: 048
     Dates: start: 2004, end: 2011
  2. LESCOL [Concomitant]
     Dosage: UNK
     Dates: start: 2003
  3. ART [Concomitant]
     Dosage: 50 UNK, UNK
     Dates: start: 2004
  4. RASILEZ HCT [Concomitant]
     Dosage: UNK
     Dates: start: 2010

REACTIONS (2)
  - Endometrial adenocarcinoma [Unknown]
  - Vaginal discharge [Unknown]
